FAERS Safety Report 5120606-4 (Version None)
Quarter: 2006Q3

REPORT INFORMATION
  Report Type: 
  Country: None (occurrence: None)
  Receive Date: 20060928
  Receipt Date: 20060915
  Transmission Date: 20061208
  Serious: Yes (Other)
  Sender: FDA-Public Use
  Company Number: 2006113896

PATIENT

DRUGS (1)
  1. PHARMORUBICIN RTU (EPIRUBICIN HYDROCHLORIDE) [Suspect]
     Dosage: 100 MG/M*2, INTRAVENOUS
     Route: 042

REACTIONS (1)
  - VASCULITIS [None]
